FAERS Safety Report 25765112 (Version 3)
Quarter: 2025Q4

REPORT INFORMATION
  Report Type: Report from Study
  Country: US (occurrence: US)
  Receive Date: 20250905
  Receipt Date: 20251113
  Transmission Date: 20260117
  Serious: Yes (Other)
  Sender: ABBVIE
  Company Number: US-ABBVIE-6444959

PATIENT
  Age: 49 Year
  Sex: Female

DRUGS (1)
  1. RINVOQ [Suspect]
     Active Substance: UPADACITINIB
     Indication: Rheumatoid arthritis
     Route: 048
     Dates: start: 20250603

REACTIONS (9)
  - Ostomy bag placement [Unknown]
  - Product residue present [Not Recovered/Not Resolved]
  - Rheumatoid arthritis [Unknown]
  - Fall [Unknown]
  - Dysuria [Unknown]
  - Peripheral swelling [Unknown]
  - Pain in extremity [Unknown]
  - Kidney infection [Unknown]
  - Urinary tract infection [Unknown]

NARRATIVE: CASE EVENT DATE: 20250101
